FAERS Safety Report 5025031-2 (Version None)
Quarter: 2006Q2

REPORT INFORMATION
  Report Type: 
  Country: None (occurrence: None)
  Receive Date: 20060426
  Receipt Date: 20060224
  Transmission Date: 20061013
  Serious: No
  Sender: FDA-Public Use
  Company Number: 2006028874

PATIENT
  Age: 59 Year
  Sex: Female
  Weight: 77.1115 kg

DRUGS (8)
  1. LYRICA [Suspect]
     Indication: NEURALGIA
     Dosage: 150 MG (75 MG, 2 IN 1 D)
     Dates: start: 20060223
  2. CORTISONE ACETATE [Suspect]
     Indication: ILL-DEFINED DISORDER
     Dates: start: 20060223
  3. ANAESTHETICS, LOCAL (ANAESTHETICS, LOCAL) [Suspect]
     Indication: LOCAL ANAESTHESIA
     Dates: start: 20060223
  4. HYDROCODONE [Concomitant]
  5. ANTIHYPERTENSIVES [Concomitant]
  6. MUSCLE RELAXANTS [Concomitant]
  7. METFORMIN [Concomitant]
  8. GLIPIZIDE [Concomitant]

REACTIONS (3)
  - ARTHRALGIA [None]
  - HEADACHE [None]
  - POOR QUALITY SLEEP [None]
